FAERS Safety Report 12813497 (Version 1)
Quarter: 2016Q4

REPORT INFORMATION
  Report Type: Spontaneous
  Country: US (occurrence: US)
  Receive Date: 20161005
  Receipt Date: 20161005
  Transmission Date: 20170207
  Serious: No
  Sender: FDA-Public Use
  Company Number: US-AMGEN-USASP2016023062

PATIENT
  Age: 87 Year
  Sex: Female
  Weight: 44.44 kg

DRUGS (1)
  1. PROLIA [Suspect]
     Active Substance: DENOSUMAB
     Indication: OSTEOPOROSIS POSTMENOPAUSAL
     Dosage: UNK
     Route: 065
     Dates: start: 201412

REACTIONS (12)
  - Eye pain [Unknown]
  - Malaise [Unknown]
  - Glossodynia [Unknown]
  - Bone pain [Unknown]
  - Constipation [Unknown]
  - Pain in extremity [Unknown]
  - Facial pain [Unknown]
  - Pain in jaw [Unknown]
  - Toothache [Unknown]
  - Sinus pain [Unknown]
  - Pain [Unknown]
  - Gastrooesophageal reflux disease [Unknown]

NARRATIVE: CASE EVENT DATE: 2016
